FAERS Safety Report 8161697-6 (Version None)
Quarter: 2012Q1

REPORT INFORMATION
  Report Type: 
  Country: None (occurrence: None)
  Receive Date: 20120224
  Receipt Date: 20110208
  Transmission Date: 20120608
  Serious: No
  Sender: FDA-Public Use
  Company Number: US-BRISTOL-MYERS SQUIBB COMPANY-15471162

PATIENT
  Age: 83 Year
  Sex: Female

DRUGS (1)
  1. GLUCOPHAGE [Suspect]
     Dosage: PILL
     Route: 048

REACTIONS (1)
  - DRUG INEFFECTIVE [None]
